FAERS Safety Report 4595901-8 (Version None)
Quarter: 2005Q1

REPORT INFORMATION
  Report Type: 
  Country: None (occurrence: None)
  Receive Date: 20050224
  Receipt Date: 20050207
  Transmission Date: 20050727
  Serious: No
  Sender: FDA-Public Use
  Company Number: GBS041216161

PATIENT
  Age: 70 Year
  Sex: Female

DRUGS (2)
  1. OLANZAPINE [Suspect]
     Indication: SCHIZOPHRENIA
     Dosage: 10 MG/2 DAY
     Dates: start: 20000101
  2. CLOPIDOGREL BISULFATE [Concomitant]

REACTIONS (4)
  - ABDOMINAL DISTENSION [None]
  - CONSTIPATION [None]
  - EXTRAPYRAMIDAL DISORDER [None]
  - NEUROMYOPATHY [None]
